FAERS Safety Report 5492422-5 (Version None)
Quarter: 2007Q4

REPORT INFORMATION
  Report Type: 
  Country: None (occurrence: None)
  Receive Date: 20071022
  Receipt Date: 20071009
  Transmission Date: 20080405
  Serious: Yes (Other)
  Sender: FDA-Public Use
  Company Number: DE-AMGEN-UK234373

PATIENT
  Sex: Male
  Weight: 78 kg

DRUGS (2)
  1. NEUPOGEN [Suspect]
     Indication: BLOOD STEM CELL HARVEST
     Route: 058
     Dates: start: 20040723, end: 20040727
  2. PARACETAMOL [Concomitant]
     Route: 048

REACTIONS (1)
  - HERPES OPHTHALMIC [None]
